FAERS Safety Report 4966509-7 (Version None)
Quarter: 2006Q2

REPORT INFORMATION
  Report Type: 
  Country: None (occurrence: None)
  Receive Date: 20060407
  Receipt Date: 20060328
  Transmission Date: 20061013
  Serious: Yes (Life-Threatening)
  Sender: FDA-Public Use
  Company Number: US-SANOFI-SYNTHELABO-A03200602009

PATIENT
  Sex: Male

DRUGS (2)
  1. AMBIEN [Suspect]
     Indication: INSOMNIA
     Route: 048
     Dates: start: 20010101
  2. EFFEXOR [Concomitant]
     Dosage: UNK
     Route: 048

REACTIONS (8)
  - ABNORMAL DREAMS [None]
  - DEPENDENCE [None]
  - EATING DISORDER SYMPTOM [None]
  - GAIT DISTURBANCE [None]
  - IMPAIRED DRIVING ABILITY [None]
  - LETHARGY [None]
  - ROAD TRAFFIC ACCIDENT [None]
  - SLEEP WALKING [None]
